FAERS Safety Report 8839704 (Version 1)
Quarter: 2012Q4

REPORT INFORMATION
  Report Type: Spontaneous
  Country: US (occurrence: None)
  Receive Date: 20121012
  Receipt Date: 20121012
  Transmission Date: 20130627
  Serious: No
  Sender: FDA-Public Use
  Company Number: None

PATIENT

DRUGS (1)
  1. LOSARTAN [Suspect]
     Indication: BLOOD PRESSURE HIGH
     Route: 048
     Dates: start: 201111, end: 201208

REACTIONS (6)
  - Myalgia [None]
  - Arthralgia [None]
  - Muscle spasms [None]
  - Dysphagia [None]
  - Urticaria [None]
  - Pruritus [None]
